FAERS Safety Report 12425532 (Version 1)
Quarter: 2016Q2

REPORT INFORMATION
  Report Type: Report from Study
  Country: US (occurrence: US)
  Receive Date: 20160601
  Receipt Date: 20160601
  Transmission Date: 20160815
  Serious: Yes (Other)
  Sender: FDA-Public Use
  Company Number: US-BRISTOL-MYERS SQUIBB COMPANY-BMS-2016-041819

PATIENT
  Sex: Male

DRUGS (1)
  1. ABATACEPT [Suspect]
     Active Substance: ABATACEPT
     Indication: CHRONIC GRAFT VERSUS HOST DISEASE
     Dosage: UNK
     Route: 065

REACTIONS (1)
  - Upper respiratory tract infection [Unknown]
